FAERS Safety Report 4507046-3 (Version None)
Quarter: 2004Q4

REPORT INFORMATION
  Report Type: 
  Country: None (occurrence: None)
  Receive Date: 20041117
  Receipt Date: 20041109
  Transmission Date: 20050328
  Serious: Yes (Hospitalization)
  Sender: FDA-Public Use
  Company Number: T03-JPN-04823-01

PATIENT
  Age: 66 Year
  Sex: Male

DRUGS (10)
  1. MEMANTINE HCL [Suspect]
     Indication: DEMENTIA ALZHEIMER'S TYPE
     Dosage: 20 MG QD PO
     Route: 048
     Dates: start: 20030214, end: 20030320
  2. MEMANTINE HCL [Suspect]
     Indication: DEMENTIA ALZHEIMER'S TYPE
     Dosage: 10 MG QD PO
     Route: 048
     Dates: start: 20030320, end: 20030417
  3. MEMANTINE HCL [Suspect]
     Indication: DEMENTIA ALZHEIMER'S TYPE
     Dosage: 20 MG QD PO
     Route: 048
     Dates: start: 20020903
  4. URSODEXOYCHOLIC ACID (TAUROURSODEOXYCHOLIC ACID) [Concomitant]
  5. LIVER HYDROLYSATE [Concomitant]
  6. MOSAPRIDE CITRATE [Concomitant]
  7. NAFTOPIDIL [Concomitant]
  8. PROPIVERINE [Concomitant]
  9. TAMSULOSIN [Concomitant]
  10. TIPERIDINE HIBENZATE [Concomitant]

REACTIONS (4)
  - ANGER [None]
  - CONDITION AGGRAVATED [None]
  - DEMENTIA [None]
  - RESTLESSNESS [None]
